FAERS Safety Report 4649593-X (Version None)
Quarter: 2005Q2

REPORT INFORMATION
  Report Type: 
  Country: None (occurrence: None)
  Receive Date: 20050331
  Receipt Date: 20050112
  Transmission Date: 20051028
  Serious: No
  Sender: FDA-Public Use
  Company Number: 05P-163-0286408-00

PATIENT
  Age: 58 Year
  Sex: Female
  Weight: 75.2971 kg

DRUGS (8)
  1. HUMIRA [Suspect]
     Indication: RHEUMATOID ARTHRITIS
     Dosage: 40 MG, 1 IN 2 WK, SUBCUTANEOUS
     Route: 058
     Dates: start: 20031201, end: 20050101
  2. MELOXICAM [Concomitant]
  3. GLIMEPIRIDE [Concomitant]
  4. ROSIGLITAZONE MALEATE [Concomitant]
  5. CYPROHEPTADINE HYDROCHLORIDE [Concomitant]
  6. PHENOBARBITAL [Concomitant]
  7. METHOTREXATE SODIUM [Concomitant]
  8. HYDROXYCHLOROQUINE SULFATE [Concomitant]

REACTIONS (2)
  - HERPES VIRUS INFECTION [None]
  - HERPES ZOSTER [None]
